FAERS Safety Report 9029379 (Version 2)
Quarter: 2013Q1

REPORT INFORMATION
  Report Type: Spontaneous
  Country: US (occurrence: US)
  Receive Date: 20130125
  Receipt Date: 20130207
  Transmission Date: 20140127
  Serious: Yes (Other)
  Sender: FDA-Public Use
  Company Number: US-SANOFI-AVENTIS-2013SA003648

PATIENT
  Age: 68 Year
  Sex: Female
  Weight: 107 kg

DRUGS (12)
  1. LANTUS SOLOSTAR [Suspect]
     Indication: TYPE 2 DIABETES MELLITUS
     Dosage: DOSE:100 UNIT(S)
     Route: 058
     Dates: start: 2007
  2. LANTUS SOLOSTAR [Suspect]
     Indication: TYPE 2 DIABETES MELLITUS
     Dosage: DOSE:100 UNIT(S)
     Route: 058
     Dates: start: 2007
  3. SOLOSTAR [Suspect]
     Indication: TYPE 2 DIABETES MELLITUS
     Dates: start: 2007
  4. SOLOSTAR [Suspect]
     Indication: TYPE 2 DIABETES MELLITUS
     Dates: start: 2007
  5. ACETAMINOPHEN W/HYDROCODONE [Concomitant]
     Indication: ARTHRALGIA
     Dosage: 5/500MG
     Route: 065
  6. OMEGA 3 [Concomitant]
     Indication: BLOOD CHOLESTEROL INCREASED
  7. METOPROLOL [Concomitant]
     Indication: CARDIAC DISORDER
  8. ASPIRIN [Concomitant]
     Indication: CARDIAC DISORDER
  9. PREVACID [Concomitant]
  10. LASIX [Concomitant]
  11. AMLODIPINE BESILATE [Concomitant]
     Indication: HYPERTENSION
  12. KLOR-CON [Concomitant]
     Indication: BLOOD POTASSIUM DECREASED

REACTIONS (3)
  - Coronary artery occlusion [Not Recovered/Not Resolved]
  - Osteoarthritis [Unknown]
  - Cataract [Not Recovered/Not Resolved]
